FAERS Safety Report 6228023-0 (Version None)
Quarter: 2009Q2

REPORT INFORMATION
  Report Type: 
  Country: None (occurrence: None)
  Receive Date: 20090610
  Receipt Date: 20090610
  Transmission Date: 20091009
  Serious: Yes (Other)
  Sender: FDA-Public Use
  Company Number: None

PATIENT
  Sex: Female
  Weight: 52.1 kg

DRUGS (2)
  1. DISULFIRAM [Suspect]
     Indication: NON-SMALL CELL LUNG CANCER
     Dosage: 250 MG QD PO
     Route: 048
     Dates: start: 20090116, end: 20090310
  2. COPPER GLUCONATE, 2MG, TWINLAB, IND #100,937 [Suspect]
     Indication: NON-SMALL CELL LUNG CANCER
     Dosage: 2 MG QD PO
     Route: 048
     Dates: start: 20090116, end: 20090310

REACTIONS (2)
  - MALIGNANT NEOPLASM PROGRESSION [None]
  - TRANSIENT ISCHAEMIC ATTACK [None]
